FAERS Safety Report 7156604-9 (Version None)
Quarter: 2010Q4

REPORT INFORMATION
  Report Type: 
  Country: None (occurrence: None)
  Receive Date: 20101214
  Receipt Date: 20091102
  Transmission Date: 20110411
  Serious: No
  Sender: FDA-Public Use
  Company Number: US-ASTRAZENECA-2009SE24049

PATIENT
  Age: 79 Year
  Sex: Female
  Weight: 61.2 kg

DRUGS (11)
  1. CRESTOR [Suspect]
     Route: 048
     Dates: start: 20090401
  2. COZAAR [Concomitant]
     Indication: HYPERTENSION
  3. POTASSIUM CHLORIDE [Concomitant]
     Indication: MINERAL SUPPLEMENTATION
  4. FUROSEMIDE [Concomitant]
     Indication: OEDEMA
  5. SERTRALINE [Concomitant]
     Indication: DEPRESSION
  6. LEVOXYL [Concomitant]
     Indication: THYROID DISORDER
  7. SOTALOL [Concomitant]
     Indication: HEART RATE IRREGULAR
  8. SYMBICORT [Concomitant]
     Indication: CHRONIC OBSTRUCTIVE PULMONARY DISEASE
  9. ALPRAZOLAM [Concomitant]
     Indication: ANXIETY
  10. CITRACAL WITH VITAMIN D [Concomitant]
  11. M.V.I. [Concomitant]

REACTIONS (4)
  - ABDOMINAL DISTENSION [None]
  - DIARRHOEA [None]
  - EYE PAIN [None]
  - NAUSEA [None]
